FAERS Safety Report 14695800 (Version 3)
Quarter: 2018Q2

REPORT INFORMATION
  Report Type: Spontaneous
  Country: SI (occurrence: SI)
  Receive Date: 20180329
  Receipt Date: 20180426
  Transmission Date: 20180711
  Serious: Yes (Hospitalization)
  Sender: FDA-Public Use
  Company Number: SI-SA-2018SA078756

PATIENT
  Age: 16 Year
  Sex: Female

DRUGS (22)
  1. PARACETAMOL [Suspect]
     Active Substance: ACETAMINOPHEN
     Route: 065
  2. HYPERICUM PERFORATUM [Suspect]
     Active Substance: HYPERICUM PERFORATUM
     Route: 065
  3. PAROXETINE. [Concomitant]
     Active Substance: PAROXETINE
     Route: 065
  4. SULPIRIDE [Concomitant]
     Active Substance: SULPIRIDE
     Indication: GALACTORRHOEA
     Route: 065
  5. METFORMIN [Concomitant]
     Active Substance: METFORMIN HYDROCHLORIDE
     Route: 065
  6. METFORMIN [Concomitant]
     Active Substance: METFORMIN HYDROCHLORIDE
     Route: 065
  7. QUETIAPINE FUMARATE. [Suspect]
     Active Substance: QUETIAPINE FUMARATE
     Indication: ANXIETY
     Dosage: SR IN THE EVENING
     Route: 048
  8. KETOPROFEN. [Concomitant]
     Active Substance: KETOPROFEN
     Route: 065
  9. YAZ [Concomitant]
     Active Substance: DROSPIRENONE\ETHINYL ESTRADIOL
     Route: 065
  10. CLONAZEPAM. [Concomitant]
     Active Substance: CLONAZEPAM
     Dosage: TIW
     Route: 065
  11. METFORMIN [Concomitant]
     Active Substance: METFORMIN HYDROCHLORIDE
     Route: 065
     Dates: start: 2016
  12. ZOLPIDEM [Suspect]
     Active Substance: ZOLPIDEM\ZOLPIDEM TARTRATE
     Route: 048
  13. SANVAL [Suspect]
     Active Substance: ZOLPIDEM TARTRATE
     Route: 065
  14. PARACETAMOL [Suspect]
     Active Substance: ACETAMINOPHEN
     Route: 065
  15. QUETIAPINE FUMARATE. [Suspect]
     Active Substance: QUETIAPINE FUMARATE
     Indication: ANXIETY
     Route: 048
  16. HYPERICUM PERFORATUM [Suspect]
     Active Substance: HYPERICUM PERFORATUM
     Route: 065
  17. SULPIRIDE [Concomitant]
     Active Substance: SULPIRIDE
     Indication: GALACTORRHOEA
     Route: 065
  18. CLONAZEPAM. [Concomitant]
     Active Substance: CLONAZEPAM
     Dosage: 0.25 MG IN MORNING AND 0.5 MG IN EVENING
     Route: 065
  19. BUPROPION. [Concomitant]
     Active Substance: BUPROPION
     Route: 065
  20. PANTOPRAZOLE [Suspect]
     Active Substance: PANTOPRAZOLE
     Dosage: IN THE MORNING
     Route: 048
  21. QUETIAPINE FUMARATE. [Suspect]
     Active Substance: QUETIAPINE FUMARATE
     Indication: ANXIETY
     Route: 048
  22. PREGABALIN. [Suspect]
     Active Substance: PREGABALIN
     Route: 048

REACTIONS (13)
  - Attention deficit/hyperactivity disorder [Unknown]
  - Anxiety [Recovering/Resolving]
  - Generalised anxiety disorder [Unknown]
  - Personality disorder [Unknown]
  - Depressed mood [Unknown]
  - Wound [Unknown]
  - Panic attack [Unknown]
  - Suicidal ideation [Unknown]
  - Self-injurious ideation [Unknown]
  - Sleep disorder [Unknown]
  - Tension [Unknown]
  - Social anxiety disorder [Unknown]
  - Cognitive disorder [Unknown]

NARRATIVE: CASE EVENT DATE: 20160328
